FAERS Safety Report 5007301-7 (Version None)
Quarter: 2006Q2

REPORT INFORMATION
  Report Type: 
  Country: None (occurrence: None)
  Receive Date: 20060518
  Receipt Date: 20060518
  Transmission Date: 20061013
  Serious: Yes (Other)
  Sender: FDA-Public Use
  Company Number: None

PATIENT
  Sex: Male
  Weight: 163 kg

DRUGS (1)
  1. WARFARIN [Suspect]
     Indication: HEART VALVE REPLACEMENT
     Dosage: DAILY

REACTIONS (1)
  - DRUG INEFFECTIVE [None]
